FAERS Safety Report 5585440-X (Version None)
Quarter: 2008Q1

REPORT INFORMATION
  Report Type: 
  Country: None (occurrence: None)
  Receive Date: 20080109
  Receipt Date: 20080107
  Transmission Date: 20080703
  Serious: Yes (Hospitalization)
  Sender: FDA-Public Use
  Company Number: HK-BRISTOL-MYERS SQUIBB COMPANY-14016380

PATIENT
  Age: 57 Year
  Sex: Male

DRUGS (3)
  1. CETUXIMAB [Suspect]
     Indication: NASOPHARYNGEAL CANCER
     Dosage: STRENGTH = 2MG/ML
  2. CISPLATIN [Suspect]
     Indication: NASOPHARYNGEAL CANCER
  3. RADIATION THERAPY [Suspect]
     Indication: NASOPHARYNGEAL CANCER

REACTIONS (1)
  - DYSPHAGIA [None]
